FAERS Safety Report 25747021 (Version 1)
Quarter: 2025Q3

REPORT INFORMATION
  Report Type: Report from Study
  Country: BR (occurrence: BR)
  Receive Date: 20250901
  Receipt Date: 20250901
  Transmission Date: 20251021
  Serious: Yes (Other)
  Sender: Haleon PLC
  Company Number: BR-HALEON-2194766

PATIENT
  Age: 58 Year
  Sex: Male
  Weight: 67 kg

DRUGS (16)
  1. DICLOFENAC [Suspect]
     Active Substance: DICLOFENAC
     Indication: Arthralgia
     Route: 048
  2. COSENTYX [Suspect]
     Active Substance: SECUKINUMAB
     Indication: Psoriatic arthropathy
     Dosage: INJECTION NOS
     Route: 065
  3. COSENTYX [Suspect]
     Active Substance: SECUKINUMAB
     Dates: start: 20210901
  4. COSENTYX [Suspect]
     Active Substance: SECUKINUMAB
     Dates: start: 20170831
  5. COSENTYX [Suspect]
     Active Substance: SECUKINUMAB
     Dates: start: 20190409
  6. COSENTYX [Suspect]
     Active Substance: SECUKINUMAB
     Route: 058
     Dates: start: 20211001
  7. COSENTYX [Suspect]
     Active Substance: SECUKINUMAB
     Dosage: 150 MG
     Route: 058
     Dates: start: 20171019
  8. COSENTYX [Suspect]
     Active Substance: SECUKINUMAB
     Dosage: 150 MG, ROUTE OF ADMINISTRATION: INJECTION NOS
     Dates: start: 20171026
  9. COSENTYX [Suspect]
     Active Substance: SECUKINUMAB
     Dosage: 150 MG, ROUTE OF ADMINISTRATION: INJECTION NOS
     Dates: start: 20171102
  10. COSENTYX [Suspect]
     Active Substance: SECUKINUMAB
     Dosage: 150 MG, ROUTE OF ADMINISTRATION: INJECTION NOS. 1 DF, Q2W (EVERY 15 DAYS)
     Dates: start: 20210901
  11. COSENTYX [Suspect]
     Active Substance: SECUKINUMAB
     Dosage: 150 MG, ROUTE OF ADMINISTRATION: INJECTION NOS
     Dates: start: 20171206
  12. COSENTYX [Suspect]
     Active Substance: SECUKINUMAB
     Dosage: 150 MG, ROUTE OF ADMINISTRATION: INJECTION NOS
     Dates: start: 20180106
  13. COSENTYX [Suspect]
     Active Substance: SECUKINUMAB
     Dates: start: 20210801
  14. MASSAGEOL [Concomitant]
     Indication: Psoriasis
  15. COSENTYX [Suspect]
     Active Substance: SECUKINUMAB
     Indication: Psoriatic arthropathy
     Route: 065
  16. ARNICA MONTANA FLOWER [Concomitant]
     Active Substance: ARNICA MONTANA FLOWER
     Indication: Product used for unknown indication

REACTIONS (40)
  - Erysipelas [Unknown]
  - Inflammation [Not Recovered/Not Resolved]
  - Agitation [Not Recovered/Not Resolved]
  - Influenza [Recovered/Resolved]
  - Fatigue [Not Recovered/Not Resolved]
  - Psoriatic arthropathy [Unknown]
  - Malaise [Unknown]
  - Asthma [Unknown]
  - Synovial cyst [Unknown]
  - Insomnia [Recovering/Resolving]
  - Rheumatoid arthritis [Unknown]
  - Rash macular [Recovering/Resolving]
  - Stress [Recovering/Resolving]
  - COVID-19 [Recovered/Resolved with Sequelae]
  - Pain [Unknown]
  - Visual impairment [Unknown]
  - Psoriasis [Not Recovered/Not Resolved]
  - Drug ineffective [Not Recovered/Not Resolved]
  - Rheumatic disorder [Recovering/Resolving]
  - Erythema [Unknown]
  - Pain in extremity [Recovering/Resolving]
  - Pyrexia [Unknown]
  - Lymphadenopathy [Unknown]
  - Arthralgia [Recovering/Resolving]
  - Joint swelling [Not Recovered/Not Resolved]
  - Musculoskeletal stiffness [Not Recovered/Not Resolved]
  - Muscular weakness [Not Recovered/Not Resolved]
  - Arthropathy [Unknown]
  - Peripheral swelling [Unknown]
  - Dyspnoea [Recovered/Resolved]
  - Asthenia [Recovered/Resolved]
  - Anosmia [Recovered/Resolved]
  - Catarrh [Recovering/Resolving]
  - Oropharyngeal pain [Recovering/Resolving]
  - Cough [Recovering/Resolving]
  - Headache [Recovering/Resolving]
  - Skin discolouration [Unknown]
  - Skin exfoliation [Not Recovered/Not Resolved]
  - Skin hypertrophy [Unknown]
  - Inappropriate schedule of product administration [Unknown]

NARRATIVE: CASE EVENT DATE: 20200508
